APPROVED DRUG PRODUCT: ACETAMINOPHEN AND CODEINE PHOSPHATE
Active Ingredient: ACETAMINOPHEN; CODEINE PHOSPHATE
Strength: 120MG/5ML;12MG/5ML
Dosage Form/Route: SOLUTION;ORAL
Application: A089450 | Product #001
Applicant: CHARTWELL SCHEDULED LLC
Approved: Oct 27, 1992 | RLD: No | RS: No | Type: DISCN